FAERS Safety Report 8253257-3 (Version None)
Quarter: 2012Q2

REPORT INFORMATION
  Report Type: 
  Country: None (occurrence: None)
  Receive Date: 20120402
  Receipt Date: 20120308
  Transmission Date: 20120825
  Serious: No
  Sender: FDA-Public Use
  Company Number: US-AMGEN-USASP2012015300

PATIENT
  Sex: Female

DRUGS (2)
  1. ENBREL [Suspect]
     Indication: PSORIATIC ARTHROPATHY
     Dosage: 50 MG, QWK
     Dates: start: 20050201
  2. ENBREL [Suspect]
     Indication: PSORIASIS

REACTIONS (4)
  - PAIN IN EXTREMITY [None]
  - BURNING SENSATION [None]
  - NEUROPATHY PERIPHERAL [None]
  - ERYTHEMA [None]
